FAERS Safety Report 18293387 (Version 2)
Quarter: 2020Q4

REPORT INFORMATION
  Report Type: Spontaneous
  Country: DE (occurrence: DE)
  Receive Date: 20200922
  Receipt Date: 20201117
  Transmission Date: 20210113
  Serious: Yes (Other)
  Sender: FDA-Public Use
  Company Number: ALC2020DE007368

PATIENT

DRUGS (4)
  1. BEVACIZUMAB. [Suspect]
     Active Substance: BEVACIZUMAB
     Indication: CHOROIDAL NEOVASCULARISATION
     Dosage: 0.05 ML (IN THE LEFT EYE)
     Route: 031
  2. ISOPTO MAX [Suspect]
     Active Substance: DEXAMETHASONE\NEOMYCIN SULFATE\POLYMYXIN B SULFATE
     Indication: CHOROIDAL NEOVASCULARISATION
     Dosage: 1 MG/G, 3500 I.E./G, 6000 I.E./G (SINGLE DOSE)
     Route: 047
  3. LIDOCAINE. [Suspect]
     Active Substance: LIDOCAINE
     Indication: GENERAL ANAESTHESIA
     Dosage: UNK
     Route: 065
  4. TROPICAMIDE. [Suspect]
     Active Substance: TROPICAMIDE
     Indication: MYDRIASIS
     Dosage: UNK
     Route: 065

REACTIONS (3)
  - Product use in unapproved indication [Unknown]
  - Condition aggravated [Unknown]
  - Ocular myasthenia [Recovered/Resolved]
